FAERS Safety Report 9952795 (Version 2)
Quarter: 2014Q1

REPORT INFORMATION
  Report Type: Spontaneous
  Country: JP (occurrence: JP)
  Receive Date: 20140304
  Receipt Date: 20140326
  Transmission Date: 20141002
  Serious: Yes (Death)
  Sender: FDA-Public Use
  Company Number: PHHY2014JP026260

PATIENT
  Sex: Male

DRUGS (4)
  1. TASIGNA [Suspect]
     Indication: CHRONIC MYELOID LEUKAEMIA
     Dosage: 600 MG, DAILY
     Route: 048
     Dates: start: 20130313
  2. LIVALO [Concomitant]
     Dosage: 2 MG
     Route: 048
  3. JANUVIA [Concomitant]
     Dosage: 100 MG
     Route: 048
  4. SEIBULE [Concomitant]
     Dosage: 150 MG
     Route: 048

REACTIONS (1)
  - Shock [Fatal]
